FAERS Safety Report 6638455-4 (Version None)
Quarter: 2010Q1

REPORT INFORMATION
  Report Type: 
  Country: None (occurrence: None)
  Receive Date: 20100316
  Receipt Date: 20100316
  Transmission Date: 20100710
  Serious: Yes (Hospitalization, Other)
  Sender: FDA-Public Use
  Company Number: None

PATIENT
  Age: 46 Year
  Sex: Female
  Weight: 77.1115 kg

DRUGS (1)
  1. ALENDRONATE SODIUM [Suspect]
     Indication: OSTEOPOROSIS
     Dosage: 1 WEEKLY PO
     Route: 048
     Dates: start: 19970301, end: 20100312

REACTIONS (3)
  - ARTHRALGIA [None]
  - FEMUR FRACTURE [None]
  - PRODUCT SUBSTITUTION ISSUE [None]
